FAERS Safety Report 6732324-7 (Version None)
Quarter: 2010Q2

REPORT INFORMATION
  Report Type: 
  Country: None (occurrence: None)
  Receive Date: 20100519
  Receipt Date: 20100513
  Transmission Date: 20101027
  Serious: Yes (Death, Hospitalization)
  Sender: FDA-Public Use
  Company Number: US-GILEAD-2010-0029060

PATIENT
  Sex: Female

DRUGS (12)
  1. LETAIRIS [Suspect]
     Indication: PULMONARY ARTERIAL HYPERTENSION
     Route: 048
     Dates: start: 20091014
  2. FUROSEMIDE [Concomitant]
  3. AMLODIPINE/BENAZ [Concomitant]
  4. BUMETANIDE [Concomitant]
  5. ISOSORBIDE [Concomitant]
  6. ALBUTEROL [Concomitant]
  7. PREDNISONE [Concomitant]
  8. LEXAPRO [Concomitant]
  9. NEXIUM [Concomitant]
  10. LEVAQUIN [Concomitant]
  11. CELEXA [Concomitant]
  12. LEVOTHYROXINE SODIUM [Concomitant]

REACTIONS (4)
  - CARDIAC DISORDER [None]
  - DISEASE PROGRESSION [None]
  - OXYGEN SATURATION DECREASED [None]
  - PULMONARY ARTERIAL PRESSURE [None]
